FAERS Safety Report 4365724-3 (Version None)
Quarter: 2004Q2

REPORT INFORMATION
  Report Type: 
  Country: None (occurrence: None)
  Receive Date: 20040526
  Receipt Date: 20040526
  Transmission Date: 20050107
  Serious: Yes (Hospitalization)
  Sender: FDA-Public Use
  Company Number: None

PATIENT
  Age: 47 Year
  Sex: Male

DRUGS (3)
  1. GATIFLOXACIN [Suspect]
     Dosage: 400 MG QD PO
     Route: 048
     Dates: start: 20040301, end: 20040319
  2. LEVETIRACETAN [Concomitant]
  3. BENZONATATE [Concomitant]

REACTIONS (2)
  - DIABETIC HYPEROSMOLAR COMA [None]
  - RENAL FAILURE ACUTE [None]
